FAERS Safety Report 4328004-8 (Version None)
Quarter: 2004Q1

REPORT INFORMATION
  Report Type: 
  Country: None (occurrence: None)
  Receive Date: 20040325
  Receipt Date: 20040316
  Transmission Date: 20041129
  Serious: Yes (Hospitalization)
  Sender: FDA-Public Use
  Company Number: 2004-03-1149

PATIENT
  Age: 79 Year
  Sex: Female
  Weight: 64 kg

DRUGS (12)
  1. NASONEX [Suspect]
     Dosage: 2 SPRAY QD NASAL SPRAY
  2. BLINDED- ZOLENDRONATE STUDY BLINDED INTRAVENOUS [Suspect]
     Indication: OSTEOPOROSIS POSTMENOPAUSAL
     Dosage: BLINDED  INTRAVENOUS
     Route: 042
     Dates: start: 20021113, end: 20021113
  3. BLINDED- ZOLENDRONATE STUDY BLINDED INTRAVENOUS [Suspect]
     Indication: OSTEOPOROSIS POSTMENOPAUSAL
     Dosage: BLINDED  INTRAVENOUS
     Route: 042
     Dates: start: 20031114, end: 20031114
  4. OXYGEN [Suspect]
  5. CALCIUM [Concomitant]
  6. VITAMIN D [Concomitant]
  7. TOPROL-XL [Concomitant]
  8. PEPCID [Concomitant]
  9. PREVACID [Concomitant]
  10. SYNTHROID [Concomitant]
  11. ADVAIR (SALMETEROL/FLUTICASONE) [Concomitant]
  12. ASPIRIN [Concomitant]

REACTIONS (8)
  - ATRIAL FIBRILLATION [None]
  - ATRIOVENTRICULAR BLOCK [None]
  - EPISTAXIS [None]
  - HAEMOPTYSIS [None]
  - HEART RATE INCREASED [None]
  - PALPITATIONS [None]
  - PNEUMOTHORAX [None]
  - SICK SINUS SYNDROME [None]
